FAERS Safety Report 9369040 (Version 2)
Quarter: 2014Q1

REPORT INFORMATION
  Report Type: Spontaneous
  Country: DK (occurrence: DK)
  Receive Date: 20130626
  Receipt Date: 20140311
  Transmission Date: 20141002
  Serious: Yes (Hospitalization, Other)
  Sender: FDA-Public Use
  Company Number: PHHY2013DK063875

PATIENT
  Age: 24 Year
  Sex: Male
  Weight: 75 kg

DRUGS (5)
  1. GILENYA [Suspect]
     Indication: MULTIPLE SCLEROSIS
     Dosage: 0.5 MG, QD
     Route: 048
     Dates: start: 20130114, end: 20130412
  2. IBUMETIN [Concomitant]
     Indication: NEURALGIA
     Dosage: 600 MG, TID
     Route: 048
     Dates: start: 201302
  3. IBUMETIN [Concomitant]
     Dosage: STYRKE: 600 MG
     Route: 048
     Dates: start: 201302
  4. MANDOLGIN [Concomitant]
     Indication: NEURALGIA
     Dates: start: 201302
  5. PANODIL [Concomitant]
     Indication: NEURALGIA
     Dates: start: 201201

REACTIONS (3)
  - Chronic inflammatory demyelinating polyradiculoneuropathy [Recovering/Resolving]
  - Clumsiness [Unknown]
  - Paresis [Unknown]
